FAERS Safety Report 6190635-0 (Version None)
Quarter: 2009Q2

REPORT INFORMATION
  Report Type: 
  Country: None (occurrence: None)
  Receive Date: 20090508
  Receipt Date: 20081031
  Transmission Date: 20091009
  Serious: Yes (Other)
  Sender: FDA-Public Use
  Company Number: 53884

PATIENT
  Age: 72 Year
  Sex: Female

DRUGS (1)
  1. ADRIAMYCIN PFS [Suspect]
     Indication: OVARIAN CANCER
     Dates: start: 20060101

REACTIONS (3)
  - BLISTER [None]
  - DRUG INEFFECTIVE [None]
  - NAIL DISORDER [None]
